FAERS Safety Report 9587558 (Version 4)
Quarter: 2013Q4

REPORT INFORMATION
  Report Type: Spontaneous
  Country: US (occurrence: US)
  Receive Date: 20131003
  Receipt Date: 20131101
  Transmission Date: 20140711
  Serious: Yes (Other)
  Sender: FDA-Public Use
  Company Number: CHPA2013US014940

PATIENT
  Age: 78 Year
  Sex: Female

DRUGS (3)
  1. CONTROL PLP [Suspect]
     Indication: SMOKING CESSATION THERAPY
     Dosage: 1 DF, QD
     Route: 062
     Dates: start: 2013, end: 20130924
  2. RADIOTHERAPY [Suspect]
     Indication: LUNG NEOPLASM MALIGNANT
     Dosage: UNK, 3 TIMES PER WEEK
     Dates: start: 201309
  3. CHEMOTHERAPEUTICS [Suspect]
     Indication: LUNG NEOPLASM MALIGNANT
     Dosage: UNK, QW
     Dates: start: 201309

REACTIONS (4)
  - Rash generalised [Not Recovered/Not Resolved]
  - Pruritus [Recovering/Resolving]
  - Blister [Not Recovered/Not Resolved]
  - Wrong technique in drug usage process [Unknown]
